FAERS Safety Report 6376297-8 (Version None)
Quarter: 2009Q3

REPORT INFORMATION
  Report Type: 
  Country: None (occurrence: None)
  Receive Date: 20090923
  Receipt Date: 20090923
  Transmission Date: 20100115
  Serious: Yes (Hospitalization)
  Sender: FDA-Public Use
  Company Number: None

PATIENT
  Age: 53 Year
  Sex: Female
  Weight: 102.5 kg

DRUGS (15)
  1. WARFARIN SODIUM [Suspect]
     Indication: ATRIAL FIBRILLATION
     Dosage: 2.5MG PO DAILY EXCEPT 5MG ON FRIDAY DAILY
     Route: 048
     Dates: end: 20090427
  2. TACROLIMUS [Concomitant]
  3. MYCOPHENOLATE MOFETIL [Concomitant]
  4. PREDNISONE TAB [Concomitant]
  5. METOPROLOL SUCCINATE [Concomitant]
  6. METOLAZONE [Concomitant]
  7. BUMETADINE [Concomitant]
  8. GABAPENTIN [Concomitant]
  9. GLARGINE [Concomitant]
  10. ALBUTEROL [Concomitant]
  11. FLONASE [Concomitant]
  12. IRON [Concomitant]
  13. CALCIUM [Concomitant]
  14. PAROXETINE [Concomitant]
  15. ATORVASTATIN [Concomitant]

REACTIONS (3)
  - ECCHYMOSIS [None]
  - INTERNATIONAL NORMALISED RATIO INCREASED [None]
  - RECTAL HAEMORRHAGE [None]
